FAERS Safety Report 7337494-8 (Version None)
Quarter: 2011Q1

REPORT INFORMATION
  Report Type: 
  Country: None (occurrence: None)
  Receive Date: 20110224
  Receipt Date: 20110209
  Transmission Date: 20110831
  Serious: Yes (Hospitalization)
  Sender: FDA-Public Use
  Company Number: 2011016567

PATIENT
  Age: 67 Year
  Sex: Male
  Weight: 94 kg

DRUGS (26)
  1. ALPRAZOLAM [Concomitant]
  2. MONTELUKAST SODIUM [Concomitant]
  3. DEXAMETHASONE (DEXAMETHASONE) [Concomitant]
  4. CYCLOBENZAPRINE [Concomitant]
  5. ONDANSETRON [Concomitant]
  6. VENLFAXINE (VENLAFAXINE) [Concomitant]
  7. PROCHLORPERAZINE MALEATE [Concomitant]
  8. ALOXI [Concomitant]
  9. MANNITOL [Concomitant]
  10. DUTASTERIDE (DUTASTERIDE) [Concomitant]
  11. PERCOCET [Concomitant]
  12. LANSOPRAZOLE [Concomitant]
  13. TAMSULOSIN HCL [Concomitant]
  14. CICLOPIROX (CICLOPIROX) [Concomitant]
  15. EMEND [Concomitant]
  16. METOPROLOL (METOPROLOL) [Concomitant]
  17. SENOKOT [Concomitant]
  18. LORATADINE [Concomitant]
  19. LORAZEPAM [Concomitant]
  20. GABAPENTIN [Concomitant]
  21. DALTEPARIN SODIUM [Suspect]
     Indication: DEEP VEIN THROMBOSIS
     Dosage: SEE IMAGE
     Route: 058
     Dates: start: 20110120
  22. DALTEPARIN SODIUM [Suspect]
     Indication: DEEP VEIN THROMBOSIS
     Dosage: SEE IMAGE
     Route: 058
     Dates: start: 20101230, end: 20110119
  23. DALTEPARIN SODIUM [Suspect]
     Indication: DEEP VEIN THROMBOSIS
     Dosage: SEE IMAGE
     Route: 058
     Dates: start: 20110202
  24. LIDODERM [Concomitant]
  25. POLYETHYLENE GLYCOL [Concomitant]
  26. CARBOPLATIN [Concomitant]

REACTIONS (24)
  - HIATUS HERNIA [None]
  - INADEQUATE ANALGESIA [None]
  - DEHYDRATION [None]
  - SEPSIS [None]
  - BONE MARROW FAILURE [None]
  - RENAL FAILURE ACUTE [None]
  - CONDITION AGGRAVATED [None]
  - OEDEMA PERIPHERAL [None]
  - CELLULITIS [None]
  - LYMPHOEDEMA [None]
  - PLEURAL EFFUSION [None]
  - HYPOPHOSPHATAEMIA [None]
  - NEPHROGENIC ANAEMIA [None]
  - LYMPHATIC OBSTRUCTION [None]
  - ANTIBIOTIC RESISTANT STAPHYLOCOCCUS TEST POSITIVE [None]
  - NEUROPATHY PERIPHERAL [None]
  - HYPOMAGNESAEMIA [None]
  - HYDRONEPHROSIS [None]
  - FLANK PAIN [None]
  - PAIN IN EXTREMITY [None]
  - ERYTHEMA [None]
  - HYPOKALAEMIA [None]
  - LYMPHADENOPATHY [None]
  - ANAEMIA OF CHRONIC DISEASE [None]
